FAERS Safety Report 14196020 (Version 2)
Quarter: 2018Q1

REPORT INFORMATION
  Report Type: Spontaneous
  Country: DE (occurrence: DE)
  Receive Date: 20171116
  Receipt Date: 20180302
  Transmission Date: 20180508
  Serious: Yes (Death, Hospitalization, Other)
  Sender: FDA-Public Use
  Company Number: DE-ASTRAZENECA-2017SF14395

PATIENT
  Age: 72 Year
  Sex: Male

DRUGS (1)
  1. IRESSA [Suspect]
     Active Substance: GEFITINIB
     Indication: BRONCHIAL CARCINOMA
     Route: 048

REACTIONS (4)
  - Death [Fatal]
  - Diarrhoea [Fatal]
  - Acute kidney injury [Fatal]
  - Pneumonia [Fatal]
